FAERS Safety Report 6415201-0 (Version None)
Quarter: 2009Q4

REPORT INFORMATION
  Report Type: 
  Country: None (occurrence: None)
  Receive Date: 20091021
  Receipt Date: 20091007
  Transmission Date: 20100525
  Serious: Yes (Hospitalization)
  Sender: FDA-Public Use
  Company Number: 1-20338366

PATIENT
  Sex: Female
  Weight: 72.5755 kg

DRUGS (4)
  1. ZIANA [Suspect]
     Indication: ACNE
     Dosage: NIGHTLY, TOPICAL
     Route: 061
     Dates: start: 20080701, end: 20090701
  2. DETROL LA (TOLTERODINE TARTRATE) [Concomitant]
  3. ZYRTEC OTC (OVER-THE-COUNTER CETRIZINE HYDROCHLORIDE) [Concomitant]
  4. ORTHO TRI-CYCLEN LO [Concomitant]

REACTIONS (7)
  - BLOOD POTASSIUM DECREASED [None]
  - COLITIS ULCERATIVE [None]
  - DEHYDRATION [None]
  - HYPOTENSION [None]
  - INTERVERTEBRAL DISC PROTRUSION [None]
  - NAUSEA [None]
  - PYREXIA [None]
